FAERS Safety Report 10064697 (Version 1)
Quarter: 2014Q2

REPORT INFORMATION
  Report Type: Spontaneous
  Country: BR (occurrence: BR)
  Receive Date: 20140408
  Receipt Date: 20140408
  Transmission Date: 20141212
  Serious: Yes (Other)
  Sender: FDA-Public Use
  Company Number: BR-JNJFOC-20140319108

PATIENT
  Age: 56 Year
  Sex: Male

DRUGS (2)
  1. ZYTIGA [Suspect]
     Indication: METASTASES TO BONE
     Route: 065
     Dates: start: 201401
  2. ZYTIGA [Suspect]
     Indication: PROSTATE CANCER
     Route: 065
     Dates: start: 201401

REACTIONS (4)
  - Lung infiltration [Unknown]
  - Leukocytosis [Unknown]
  - Productive cough [Unknown]
  - Chest pain [Unknown]
